FAERS Safety Report 18272085 (Version 1)
Quarter: 2020Q3

REPORT INFORMATION
  Report Type: Spontaneous
  Country: SE (occurrence: SE)
  Receive Date: 20200916
  Receipt Date: 20200916
  Transmission Date: 20201103
  Serious: Yes (Other)
  Sender: FDA-Public Use
  Company Number: SE-ACCORD-201303

PATIENT
  Age: 31 Year
  Sex: Female
  Weight: 57 kg

DRUGS (1)
  1. SERTRALINE [Suspect]
     Active Substance: SERTRALINE HYDROCHLORIDE
     Indication: DEPRESSION
     Dosage: TABLET 75 MG
     Dates: start: 20170614, end: 20200801

REACTIONS (2)
  - Visual field defect [Recovered/Resolved with Sequelae]
  - Retinopathy [Recovered/Resolved with Sequelae]

NARRATIVE: CASE EVENT DATE: 20200528
